FAERS Safety Report 25019441 (Version 3)
Quarter: 2025Q1

REPORT INFORMATION
  Report Type: Report from Study
  Country: US (occurrence: None)
  Receive Date: 20250227
  Receipt Date: 20250328
  Transmission Date: 20250409
  Serious: Yes (Other)
  Sender: INCYTE
  Company Number: US-INCYTE CORPORATION-2025IN001015

PATIENT
  Age: 66 Year
  Weight: 116 kg

DRUGS (22)
  1. JAKAFI [Suspect]
     Active Substance: RUXOLITINIB
     Indication: Polycythaemia vera
     Dosage: 20 MILLIGRAM, BID
  2. JAKAFI [Suspect]
     Active Substance: RUXOLITINIB
     Dosage: 20 MILLIGRAM, BID
  3. JAKAFI [Suspect]
     Active Substance: RUXOLITINIB
     Dosage: 20 MILLIGRAM, BID
  4. ASPIRIN [Concomitant]
     Active Substance: ASPIRIN
     Indication: Product used for unknown indication
     Route: 065
  5. COENZYME Q10 [Concomitant]
     Active Substance: DIETARY SUPPLEMENT\UBIDECARENONE
     Indication: Product used for unknown indication
     Route: 065
  6. ELIQUIS [Concomitant]
     Active Substance: APIXABAN
     Indication: Product used for unknown indication
     Route: 065
  7. FENUGREEK SEED [Concomitant]
     Active Substance: FENUGREEK SEED
     Indication: Product used for unknown indication
  8. FOLIC ACID [Concomitant]
     Active Substance: FOLIC ACID
     Indication: Product used for unknown indication
     Route: 065
  9. LOSARTAN [Concomitant]
     Active Substance: LOSARTAN
     Indication: Product used for unknown indication
     Route: 065
  10. METOPROLOL [Concomitant]
     Active Substance: METOPROLOL
     Indication: Product used for unknown indication
     Route: 065
  11. VITAMIN D3 [Concomitant]
     Active Substance: CHOLECALCIFEROL
     Indication: Product used for unknown indication
     Route: 065
  12. CAMU CAMU [MYRCIARIA DUBIA FRUIT] [Concomitant]
     Indication: Product used for unknown indication
     Route: 065
  13. BLACK CURRANT [Concomitant]
     Active Substance: BLACK CURRANT
     Indication: Product used for unknown indication
     Route: 065
  14. HERBALS [Concomitant]
     Active Substance: HERBALS
     Indication: Product used for unknown indication
     Route: 065
  15. ICAPS AREDS FORMULA [Concomitant]
     Indication: Product used for unknown indication
     Route: 065
  16. ANDROGRAPHIS PANICULATA [Concomitant]
     Indication: Product used for unknown indication
     Route: 065
  17. VITAMIN D NOS [Concomitant]
     Active Substance: CHOLECALCIFEROL\ERGOCALCIFEROL
     Indication: Product used for unknown indication
     Route: 065
  18. LACTOBACILLUS REUTERI [Concomitant]
     Active Substance: LACTOBACILLUS REUTERI
     Indication: Product used for unknown indication
     Route: 065
  19. LACTOBACILLUS PLANTARUM [Concomitant]
     Active Substance: LACTOBACILLUS PLANTARUM
     Indication: Product used for unknown indication
     Route: 065
  20. LINDERA SPP. [Concomitant]
     Indication: Product used for unknown indication
     Route: 065
  21. UROX [CRATEVA MAGNA;EQUISETUM ARVENSE;LINDERA AGGREGATA] [Concomitant]
     Indication: Product used for unknown indication
     Route: 065
  22. OXYCODONE [Concomitant]
     Active Substance: OXYCODONE
     Indication: Product used for unknown indication
     Route: 065

REACTIONS (7)
  - Arthropathy [Unknown]
  - Glucose tolerance impaired [Unknown]
  - Oedema [Unknown]
  - Weight loss poor [Unknown]
  - Arthritis [Unknown]
  - Weight increased [Unknown]
  - Blood cholesterol increased [Unknown]
